FAERS Safety Report 24172027 (Version 1)
Quarter: 2024Q3

REPORT INFORMATION
  Report Type: Spontaneous
  Country: US (occurrence: US)
  Receive Date: 20240805
  Receipt Date: 20240805
  Transmission Date: 20241017
  Serious: Yes (Other)
  Sender: DR REDDYS
  Company Number: US-DRL-USA-LIT/USA/24/0011262

PATIENT
  Age: 2 Month
  Sex: Female

DRUGS (12)
  1. VIGABATRIN [Suspect]
     Active Substance: VIGABATRIN
     Indication: Partial seizures
  2. VIGABATRIN [Suspect]
     Active Substance: VIGABATRIN
     Indication: Infantile spasms
  3. MEMANTINE [Suspect]
     Active Substance: MEMANTINE
     Indication: Infantile spasms
  4. MEMANTINE [Suspect]
     Active Substance: MEMANTINE
     Indication: Partial seizures
     Dosage: TITRATED UP TO 2.5 MG/KG/DAY
  5. LEVETIRACETAM [Suspect]
     Active Substance: LEVETIRACETAM
     Indication: Infantile spasms
     Dosage: 35 MG/KG/DAY
  6. LEVETIRACETAM [Suspect]
     Active Substance: LEVETIRACETAM
     Indication: Partial seizures
  7. LORAZEPAM [Suspect]
     Active Substance: LORAZEPAM
     Indication: Infantile spasms
     Dosage: 0.1 MG/KG/DOSE TID
  8. LORAZEPAM [Suspect]
     Active Substance: LORAZEPAM
     Indication: Partial seizures
  9. PHENOBARBITAL [Suspect]
     Active Substance: PHENOBARBITAL
     Indication: Infantile spasms
     Dosage: 3.6 MG/KG/DAY
  10. PHENOBARBITAL [Suspect]
     Active Substance: PHENOBARBITAL
     Indication: Partial seizures
  11. PREDNISOLONE [Concomitant]
     Active Substance: PREDNISOLONE
     Indication: Infantile spasms
     Dosage: HIGH DOSE
  12. PREDNISOLONE [Concomitant]
     Active Substance: PREDNISOLONE
     Indication: Partial seizures

REACTIONS (2)
  - Drug ineffective [Unknown]
  - Product use in unapproved indication [Unknown]
